FAERS Safety Report 8061837-3 (Version None)
Quarter: 2012Q1

REPORT INFORMATION
  Report Type: 
  Country: None (occurrence: None)
  Receive Date: 20120123
  Receipt Date: 20120118
  Transmission Date: 20120608
  Serious: No
  Sender: FDA-Public Use
  Company Number: US-PFIZER INC-2012015080

PATIENT
  Sex: Female
  Weight: 85.261 kg

DRUGS (1)
  1. NORVASC [Suspect]
     Indication: HYPERTENSION
     Dosage: 40 MG, 1X/DAY
     Dates: start: 20090101, end: 20111201

REACTIONS (2)
  - OVERDOSE [None]
  - OEDEMA PERIPHERAL [None]
